FAERS Safety Report 11275161 (Version 1)
Quarter: 2015Q3

REPORT INFORMATION
  Report Type: Spontaneous
  Country: US (occurrence: None)
  Receive Date: 20150715
  Receipt Date: 20150715
  Transmission Date: 20151125
  Serious: Yes (Death)
  Sender: FDA-Public Use
  Company Number: None

PATIENT
  Age: 67 Year
  Sex: Female

DRUGS (1)
  1. INLYTA [Suspect]
     Active Substance: AXITINIB
     Indication: RENAL CANCER
     Route: 048
     Dates: start: 20140603, end: 20150704

REACTIONS (6)
  - Confusional state [None]
  - Weight decreased [None]
  - Serotonin syndrome [None]
  - Decreased appetite [None]
  - Transient ischaemic attack [None]
  - Dehydration [None]

NARRATIVE: CASE EVENT DATE: 20150704
